FAERS Safety Report 9372161 (Version 1)
Quarter: 2013Q2

REPORT INFORMATION
  Report Type: Spontaneous
  Country: US (occurrence: US)
  Receive Date: 20130627
  Receipt Date: 20130627
  Transmission Date: 20140414
  Serious: Yes (Other)
  Sender: FDA-Public Use
  Company Number: US-JNJFOC-20130612170

PATIENT
  Sex: 0

DRUGS (2)
  1. XARELTO [Suspect]
     Indication: CEREBROVASCULAR ACCIDENT PROPHYLAXIS
     Dosage: INITIALLY THOUGHT TO BE ON THE 20MG BUT IS BELIEVED TO BE ON THE 15MG DOSE??INSTEAD.
     Route: 048
  2. XARELTO [Suspect]
     Indication: ATRIAL FIBRILLATION
     Dosage: INITIALLY THOUGHT TO BE ON THE 20MG BUT IS BELIEVED TO BE ON THE 15MG DOSE??INSTEAD.
     Route: 048

REACTIONS (2)
  - Haemoglobin decreased [Unknown]
  - Creatinine renal clearance decreased [Unknown]
